FAERS Safety Report 13099872 (Version 1)
Quarter: 2017Q1

REPORT INFORMATION
  Report Type: Spontaneous
  Country: US (occurrence: US)
  Receive Date: 20170110
  Receipt Date: 20170110
  Transmission Date: 20170428
  Serious: No
  Sender: FDA-Public Use
  Company Number: US-BIOGEN-2017BI00338476

PATIENT
  Sex: Female

DRUGS (1)
  1. AVONEX [Suspect]
     Active Substance: INTERFERON BETA-1A
     Indication: MULTIPLE SCLEROSIS
     Route: 065
     Dates: start: 20010101

REACTIONS (5)
  - Visual impairment [Unknown]
  - Keratomileusis [Unknown]
  - Headache [Unknown]
  - Menopause [Unknown]
  - Hot flush [Unknown]

NARRATIVE: CASE EVENT DATE: 2005
